FAERS Safety Report 9175197 (Version 1)
Quarter: 2013Q1

REPORT INFORMATION
  Report Type: Spontaneous
  Country: US (occurrence: US)
  Receive Date: 20130320
  Receipt Date: 20130320
  Transmission Date: 20140127
  Serious: Yes (Hospitalization, Other)
  Sender: FDA-Public Use
  Company Number: US-ROCHE-1202203

PATIENT
  Age: 62 Year
  Sex: Female
  Weight: 40 kg

DRUGS (2)
  1. BONIVA [Suspect]
     Indication: OSTEOPOROSIS
     Route: 065
  2. FOSAMAX [Suspect]
     Indication: OSTEOPOROSIS
     Route: 065

REACTIONS (7)
  - Femur fracture [Unknown]
  - Pathological fracture [Unknown]
  - Osteoarthritis [Unknown]
  - Small intestinal obstruction [Unknown]
  - Stress fracture [Unknown]
  - Radial nerve palsy [Unknown]
  - Depression [Unknown]
